FAERS Safety Report 13902143 (Version 4)
Quarter: 2017Q4

REPORT INFORMATION
  Report Type: Spontaneous
  Country: US (occurrence: US)
  Receive Date: 20170824
  Receipt Date: 20171027
  Transmission Date: 20180320
  Serious: Yes (Hospitalization, Other)
  Sender: FDA-Public Use
  Company Number: US-009507513-1708USA008684

PATIENT
  Age: 66 Year
  Sex: Male

DRUGS (5)
  1. NORTHERA [Interacting]
     Active Substance: DROXIDOPA
     Indication: PARKINSON^S DISEASE
     Dosage: 500 MG, TID
     Dates: start: 20161117
  2. SINEMET [Suspect]
     Active Substance: CARBIDOPA\LEVODOPA
     Dosage: UNK
     Route: 048
     Dates: start: 2017
  3. NORTHERA [Interacting]
     Active Substance: DROXIDOPA
     Dosage: DOCTOR WAS INCREASING THE DOSE APPROPRIATELY PER WIFE
     Route: 048
     Dates: start: 2017
  4. NEUPRO [Concomitant]
     Active Substance: ROTIGOTINE
     Dosage: 4 MG, PATCH
  5. NORTHERA [Interacting]
     Active Substance: DROXIDOPA
     Indication: ORTHOSTATIC HYPOTENSION
     Dosage: 2 CAPSULES (400 MG), TID
     Route: 048
     Dates: start: 20170218, end: 2017

REACTIONS (9)
  - Drug interaction [Unknown]
  - Blood pressure decreased [Unknown]
  - Thrombosis [Unknown]
  - Decreased activity [Unknown]
  - Urinary tract infection [Recovering/Resolving]
  - Fall [Unknown]
  - Blood pressure fluctuation [Unknown]
  - Loss of consciousness [Unknown]
  - Parkinson^s disease [Unknown]

NARRATIVE: CASE EVENT DATE: 2017
